FAERS Safety Report 4376848-9 (Version None)
Quarter: 2004Q2

REPORT INFORMATION
  Report Type: 
  Country: None (occurrence: None)
  Receive Date: 20040609
  Receipt Date: 20040330
  Transmission Date: 20050107
  Serious: Yes (Other)
  Sender: FDA-Public Use
  Company Number: US-SHR-04-020766

PATIENT
  Age: 21 Year
  Sex: Female

DRUGS (2)
  1. YASMIN [Suspect]
     Indication: ORAL CONTRACEPTION
     Dosage: 1 TAB(S), 1X/DAY; ORAL
     Route: 048
     Dates: start: 20030701, end: 20040127
  2. ADVAIR DISKUS [Concomitant]

REACTIONS (1)
  - ERYTHEMA NODOSUM [None]
